FAERS Safety Report 18994364 (Version 1)
Quarter: 2021Q1

REPORT INFORMATION
  Report Type: Spontaneous
  Country: DE (occurrence: CN)
  Receive Date: 20210310
  Receipt Date: 20210310
  Transmission Date: 20210420
  Serious: Yes (Hospitalization)
  Sender: FDA-Public Use
  Company Number: CN-ELI_LILLY_AND_COMPANY-CN202103003595

PATIENT
  Age: 61 Year
  Sex: Male
  Weight: 61 kg

DRUGS (4)
  1. FLUOROURACIL. [Suspect]
     Active Substance: FLUOROURACIL
     Dosage: 2.125 G, DAILY, 0.9% SODIUM CHLORIDE 70ML QD CONTINUOUS PUMP INJECTION
     Route: 041
     Dates: start: 20210207
  2. IRINOTECAN HYDROCHLORIDE. [Suspect]
     Active Substance: IRINOTECAN HYDROCHLORIDE
     Indication: RECTAL CANCER
     Dosage: .3 G, DAILY, 250ML OF 0.9% SODIUM CHLORIDE INJECTION VIA INTRAVENOUS DRIP ONCE
     Route: 041
     Dates: start: 20210207
  3. ERBITUX [Suspect]
     Active Substance: CETUXIMAB
     Indication: RECTAL CANCER
     Dosage: 800 MG, UNKNOWN
     Route: 041
     Dates: start: 20210207
  4. FLUOROURACIL. [Suspect]
     Active Substance: FLUOROURACIL
     Indication: RECTAL CANCER
     Dosage: .7 G, DAILY, 0.9% SODIUM CHLORIDE INJECTION 50ML INTRAVENOUS DRIP ONCE
     Route: 041
     Dates: start: 20210207, end: 20210207

REACTIONS (1)
  - Granulocytopenia [Recovering/Resolving]

NARRATIVE: CASE EVENT DATE: 20210224
